FAERS Safety Report 12014400 (Version 1)
Quarter: 2016Q1

REPORT INFORMATION
  Report Type: Spontaneous
  Country: US (occurrence: US)
  Receive Date: 20160205
  Receipt Date: 20160205
  Transmission Date: 20160526
  Serious: No
  Sender: FDA-Public Use
  Company Number: US-BAYER-2016-018716

PATIENT
  Age: 19 Year
  Sex: Female

DRUGS (2)
  1. MIRENA [Suspect]
     Active Substance: LEVONORGESTREL
     Indication: GENITAL HAEMORRHAGE
     Dosage: UNK
  2. MIRENA [Suspect]
     Active Substance: LEVONORGESTREL
     Indication: GENITAL HAEMORRHAGE
     Dosage: 20 MCG/24HR, CONT
     Route: 015
     Dates: start: 20150608

REACTIONS (10)
  - Device issue [None]
  - Visual impairment [None]
  - Headache [None]
  - Abdominal pain lower [None]
  - Dysmenorrhoea [None]
  - Off label use of device [None]
  - Weight increased [None]
  - Mood swings [None]
  - Tinnitus [None]
  - Abdominal distension [None]

NARRATIVE: CASE EVENT DATE: 2015
